FAERS Safety Report 21536249 (Version 1)
Quarter: 2022Q4

REPORT INFORMATION
  Report Type: Spontaneous
  Country: US (occurrence: None)
  Receive Date: 20221031
  Receipt Date: 20221031
  Transmission Date: 20230113
  Serious: No
  Sender: FDA-Public Use
  Company Number: None

PATIENT
  Sex: Male

DRUGS (1)
  1. EVEROLIMUS [Suspect]
     Active Substance: EVEROLIMUS
     Dosage: FREQUENCY : DAILY;?
     Route: 048

REACTIONS (6)
  - Fall [None]
  - Head injury [None]
  - Blood pressure decreased [None]
  - Haematological infection [None]
  - Vomiting [None]
  - Pollakiuria [None]
